FAERS Safety Report 7984676-8 (Version None)
Quarter: 2011Q4

REPORT INFORMATION
  Report Type: 
  Country: None (occurrence: None)
  Receive Date: 20111216
  Receipt Date: 20111011
  Transmission Date: 20120403
  Serious: Yes (Hospitalization, Other)
  Sender: FDA-Public Use
  Company Number: US-GLAXOSMITHKLINE-A0932742A

PATIENT
  Age: 45 Year
  Sex: Female

DRUGS (3)
  1. PROMACTA [Suspect]
     Indication: IDIOPATHIC THROMBOCYTOPENIC PURPURA
     Dosage: 50MG PER DAY
     Route: 048
     Dates: start: 20091101, end: 20110621
  2. PREDNISONE [Concomitant]
  3. ESTROGEN CREAM [Concomitant]

REACTIONS (3)
  - ANTIPHOSPHOLIPID ANTIBODIES [None]
  - PULMONARY EMBOLISM [None]
  - PLATELET COUNT INCREASED [None]
